FAERS Safety Report 13570989 (Version 2)
Quarter: 2017Q3

REPORT INFORMATION
  Report Type: Report from Study
  Country: JP (occurrence: JP)
  Receive Date: 20170523
  Receipt Date: 20170725
  Transmission Date: 20171127
  Serious: Yes (Hospitalization)
  Sender: FDA-Public Use
  Company Number: JP-ROCHE-1580588

PATIENT
  Age: 4 Year
  Sex: Female
  Weight: 25 kg

DRUGS (42)
  1. PREDONINE [Concomitant]
     Active Substance: PREDNISOLONE
     Route: 048
     Dates: start: 20141126, end: 20141209
  2. PREDONINE [Concomitant]
     Active Substance: PREDNISOLONE
     Route: 048
     Dates: start: 20150706, end: 20150715
  3. PREDONINE [Concomitant]
     Active Substance: PREDNISOLONE
     Dosage: 0-17.5 MG
     Route: 048
     Dates: start: 20151109, end: 20151122
  4. MIZORIBINE [Concomitant]
     Active Substance: MIZORIBINE
     Indication: NEPHROTIC SYNDROME
     Route: 048
     Dates: start: 20140516
  5. ATARAX-P [Concomitant]
     Active Substance: HYDROXYZINE HYDROCHLORIDE
     Indication: PREMEDICATION
     Route: 042
     Dates: start: 20140903, end: 20140903
  6. PREDONINE [Concomitant]
     Active Substance: PREDNISOLONE
     Dosage: 0-25 MG?28/OCT/2015 TO 08/NOV/2015
     Route: 048
     Dates: start: 20150728, end: 20150810
  7. ATARAX-P [Concomitant]
     Active Substance: HYDROXYZINE HYDROCHLORIDE
     Route: 042
     Dates: start: 20151008, end: 20151008
  8. PREDONINE [Concomitant]
     Active Substance: PREDNISOLONE
     Route: 048
     Dates: start: 20141015, end: 20141028
  9. PREDONINE [Concomitant]
     Active Substance: PREDNISOLONE
     Route: 048
     Dates: start: 20141112, end: 20141125
  10. CALONAL [Concomitant]
     Active Substance: ACETAMINOPHEN
     Indication: PREMEDICATION
     Route: 048
     Dates: start: 20140903, end: 20140903
  11. METHYLPREDNISOLONE SODIUM SUCCINATE. [Concomitant]
     Active Substance: METHYLPREDNISOLONE SODIUM SUCCINATE
     Indication: PREMEDICATION
     Route: 042
     Dates: start: 20151008, end: 20151008
  12. PREDONINE [Concomitant]
     Active Substance: PREDNISOLONE
     Route: 048
     Dates: start: 20141210
  13. PREDONINE [Concomitant]
     Active Substance: PREDNISOLONE
     Dosage: 0-15 MG
     Route: 048
     Dates: start: 20150811, end: 20150819
  14. CICLOSPORIN [Concomitant]
     Active Substance: CYCLOSPORINE
     Route: 048
     Dates: start: 20151211
  15. CEFAZOLIN [Concomitant]
     Active Substance: CEFAZOLIN
     Indication: INFECTION
     Route: 042
     Dates: start: 20151017, end: 20151023
  16. RITUXIMAB. [Suspect]
     Active Substance: RITUXIMAB
     Indication: NEPHROTIC SYNDROME
     Route: 042
     Dates: start: 20140903, end: 20140903
  17. PREDONINE [Concomitant]
     Active Substance: PREDNISOLONE
     Route: 048
     Dates: start: 20140917, end: 20140930
  18. PREDONINE [Concomitant]
     Active Substance: PREDNISOLONE
     Route: 048
     Dates: start: 20141001, end: 20141014
  19. PREDONINE [Concomitant]
     Active Substance: PREDNISOLONE
     Dosage: 06/JUN/2015 TO 24/JUN/2015 (5 MG)
     Route: 048
     Dates: start: 20150324, end: 20150401
  20. PREDONINE [Concomitant]
     Active Substance: PREDNISOLONE
     Route: 048
     Dates: start: 20150416, end: 20150417
  21. PREDONINE [Concomitant]
     Active Substance: PREDNISOLONE
     Dosage: 0-12.5 MG
     Route: 048
     Dates: start: 20151123, end: 20151206
  22. DIPYRIDAMOLE. [Concomitant]
     Active Substance: DIPYRIDAMOLE
     Route: 048
     Dates: start: 20141128
  23. PREDONINE [Concomitant]
     Active Substance: PREDNISOLONE
     Dosage: 0-5 MG
     Route: 048
     Dates: start: 20150402, end: 20150415
  24. PREDONINE [Concomitant]
     Active Substance: PREDNISOLONE
     Dosage: 09/MAY/2015 TO 22/MAY/2015, ?23/MAY/2015 TO 05/JUN/2015 AT A DOSE OF 10 MG
     Route: 048
     Dates: start: 20150418, end: 20150508
  25. PREDONINE [Concomitant]
     Active Substance: PREDNISOLONE
     Dosage: 0-10 MG?07/DEC/2015 TO 14/JAN/2016
     Route: 048
     Dates: start: 20150624, end: 20150705
  26. PREDONINE [Concomitant]
     Active Substance: PREDNISOLONE
     Dosage: 0-35 MG?20/AUG/2015 TO 10/SEP/2015, 06/OCT/2015 TO 27/OCT/2015
     Route: 048
     Dates: start: 20150716, end: 20150727
  27. AMLODIPINE BESILATE [Concomitant]
     Active Substance: AMLODIPINE BESYLATE
     Indication: HYPERTENSION
     Route: 048
     Dates: start: 20140422
  28. ENALAPRIL MALEATE. [Concomitant]
     Active Substance: ENALAPRIL MALEATE
     Route: 048
     Dates: start: 20141031, end: 20150305
  29. PREDNISOLONE. [Concomitant]
     Active Substance: PREDNISOLONE
     Dosage: 0-25 MG
     Route: 048
     Dates: start: 20150811, end: 20150819
  30. BAKTAR [Concomitant]
     Active Substance: SULFAMETHOXAZOLE\TRIMETHOPRIM
     Indication: INFECTION PROPHYLAXIS
     Dosage: 1 PACKET
     Route: 048
     Dates: start: 20140904, end: 20150305
  31. PREDONINE [Concomitant]
     Active Substance: PREDNISOLONE
     Indication: NEPHROTIC SYNDROME
     Route: 048
     Dates: start: 20140820, end: 20140916
  32. CICLOSPORIN [Concomitant]
     Active Substance: CYCLOSPORINE
     Route: 048
     Dates: start: 20141212, end: 20151026
  33. ENALAPRIL MALEATE. [Concomitant]
     Active Substance: ENALAPRIL MALEATE
     Indication: HYPERTENSION
     Route: 048
     Dates: end: 20141030
  34. RITUXIMAB. [Suspect]
     Active Substance: RITUXIMAB
     Route: 042
     Dates: start: 20151008, end: 20151008
  35. PREDONINE [Concomitant]
     Active Substance: PREDNISOLONE
     Route: 048
     Dates: start: 20141029, end: 20141111
  36. PREDONINE [Concomitant]
     Active Substance: PREDNISOLONE
     Dosage: 0-5 MG
     Route: 048
     Dates: end: 20150323
  37. CICLOSPORIN [Concomitant]
     Active Substance: CYCLOSPORINE
     Indication: NEPHROTIC SYNDROME
     Dosage: 27/OCT/2015 TO 10/DEC/2015
     Route: 048
     Dates: start: 20130627, end: 20141211
  38. CALONAL [Concomitant]
     Active Substance: ACETAMINOPHEN
     Route: 048
     Dates: start: 20151008, end: 20151008
  39. ATARAX-P [Concomitant]
     Active Substance: HYDROXYZINE HYDROCHLORIDE
     Route: 042
     Dates: start: 20151017, end: 20151017
  40. SOLU-MEDROL [Concomitant]
     Active Substance: METHYLPREDNISOLONE SODIUM SUCCINATE
     Indication: PREMEDICATION
     Route: 042
     Dates: start: 20140903, end: 20140903
  41. DIPYRIDAMOLE. [Concomitant]
     Active Substance: DIPYRIDAMOLE
     Route: 048
     Dates: end: 20141127
  42. PREDNISOLONE. [Concomitant]
     Active Substance: PREDNISOLONE
     Indication: NEPHROTIC SYNDROME
     Route: 048
     Dates: start: 20150418, end: 20150508

REACTIONS (7)
  - Wheezing [Recovered/Resolved]
  - Oxygen saturation decreased [Recovered/Resolved]
  - Kawasaki^s disease [Recovered/Resolved]
  - Bronchitis [Recovered/Resolved]
  - Upper respiratory tract inflammation [Recovered/Resolved]
  - Urticaria [Recovered/Resolved]
  - Pharyngitis [Recovered/Resolved]

NARRATIVE: CASE EVENT DATE: 20140903
